FAERS Safety Report 8710062 (Version 2)
Quarter: 2012Q4

REPORT INFORMATION
  Report Type: 
  Country: US (occurrence: US)
  Receive Date: 20120806
  Receipt Date: 20120914
  Transmission Date: 20130627
  Serious: Yes (Other)
  Sender: FDA-Public Use
  Company Number: US-PFIZER INC-2012187247

PATIENT
  Age: 70 Year
  Sex: Female
  Weight: 113 kg

DRUGS (4)
  1. LYRICA [Suspect]
     Indication: NEURALGIA
     Dosage: 150 mg, 2x/day
     Dates: start: 2010
  2. REMERON [Concomitant]
     Indication: DEPRESSION
     Dosage: UNK
  3. PERCOCET [Concomitant]
     Indication: PAIN
     Dosage: UNK
  4. KLONOPIN [Concomitant]
     Dosage: 0.5 mg, UNK

REACTIONS (3)
  - Neuropathy peripheral [Unknown]
  - Sciatica [Unknown]
  - Pain [Unknown]
